FAERS Safety Report 12649357 (Version 1)
Quarter: 2016Q3

REPORT INFORMATION
  Report Type: Spontaneous
  Country: GR (occurrence: GR)
  Receive Date: 20160812
  Receipt Date: 20160812
  Transmission Date: 20161109
  Serious: Yes (Hospitalization, Other)
  Sender: FDA-Public Use
  Company Number: GR-MYLANLABS-2016M1032790

PATIENT

DRUGS (8)
  1. VANCOMYCIN MYLAN [Suspect]
     Active Substance: VANCOMYCIN
     Indication: SEPTIC SHOCK
     Dosage: 500 MG, QID
     Route: 042
     Dates: start: 20160527, end: 20160530
  2. MEROPENEM. [Concomitant]
     Active Substance: MEROPENEM
  3. VANCOMYCIN MYLAN [Suspect]
     Active Substance: VANCOMYCIN
     Dosage: 600 MG, QID
     Route: 042
     Dates: start: 20160602, end: 20160604
  4. METRONIDAZOLE. [Concomitant]
     Active Substance: METRONIDAZOLE
  5. AMIKACIN [Concomitant]
     Active Substance: AMIKACIN
  6. VANCOMYCIN MYLAN [Suspect]
     Active Substance: VANCOMYCIN
     Dosage: 60MG/KG PER DAY
     Route: 042
     Dates: start: 20160531, end: 20160601
  7. VANCOMYCIN MYLAN [Suspect]
     Active Substance: VANCOMYCIN
     Dosage: FOUR DOSAGE FORMS PER DAY (500MG/675MG/500MG/675MG)
     Route: 042
     Dates: start: 20160530, end: 20160531
  8. VANCOMYCIN MYLAN [Suspect]
     Active Substance: VANCOMYCIN
     Dosage: 500 MG, QID
     Route: 042
     Dates: start: 20160601, end: 20160602

REACTIONS (1)
  - Drug level below therapeutic [Unknown]

NARRATIVE: CASE EVENT DATE: 20160527
